FAERS Safety Report 21144964 (Version 1)
Quarter: 2022Q3

REPORT INFORMATION
  Report Type: Spontaneous
  Country: DE (occurrence: DE)
  Receive Date: 20220728
  Receipt Date: 20220728
  Transmission Date: 20221027
  Serious: Yes (Other)
  Sender: FDA-Public Use
  Company Number: DE-ABBVIE-22K-062-4474797-00

PATIENT
  Age: 41 Year

DRUGS (1)
  1. ADALIMUMAB [Suspect]
     Active Substance: ADALIMUMAB
     Indication: Rheumatoid arthritis
     Dosage: UNK
     Route: 058
     Dates: start: 201808, end: 202004

REACTIONS (4)
  - Osteogenesis imperfecta [Unknown]
  - Bone marrow oedema [Unknown]
  - Bone loss [Unknown]
  - Inflammation [Unknown]
